FAERS Safety Report 14414830 (Version 2)
Quarter: 2018Q1

REPORT INFORMATION
  Report Type: Spontaneous
  Country: US (occurrence: US)
  Receive Date: 20180120
  Receipt Date: 20180124
  Transmission Date: 20180509
  Serious: No
  Sender: FDA-Public Use
  Company Number: US-009507513-1801USA002892

PATIENT
  Age: 20 Year
  Sex: Female
  Weight: 61.22 kg

DRUGS (1)
  1. NEXPLANON [Suspect]
     Active Substance: ETONOGESTREL
     Indication: CONTRACEPTION
     Dosage: EVERY 3 YEARS / RIGHT ARM IMPLANT
     Route: 059
     Dates: start: 20170822

REACTIONS (4)
  - Device kink [Not Recovered/Not Resolved]
  - Implant site pain [Unknown]
  - Device breakage [Not Recovered/Not Resolved]
  - Implant site irritation [Unknown]

NARRATIVE: CASE EVENT DATE: 20180101
